FAERS Safety Report 18823076 (Version 2)
Quarter: 2022Q2

REPORT INFORMATION
  Report Type: Spontaneous
  Country: US (occurrence: US)
  Receive Date: 20210202
  Receipt Date: 20220510
  Transmission Date: 20220721
  Serious: No
  Sender: FDA-Public Use
  Company Number: US-BIOMARINAP-US-2021-134496

PATIENT
  Age: 26 Year
  Sex: Male

DRUGS (2)
  1. LARONIDASE [Suspect]
     Active Substance: LARONIDASE
     Indication: Mucopolysaccharidosis I
     Dosage: 58.00 MGS
     Route: 042
     Dates: start: 20181016
  2. LARONIDASE [Suspect]
     Active Substance: LARONIDASE
     Dosage: 58.00 MGS
     Route: 042
     Dates: start: 20210201

REACTIONS (3)
  - Hernia [Recovered/Resolved]
  - Carpal tunnel syndrome [Recovering/Resolving]
  - Mobility decreased [Recovering/Resolving]
